FAERS Safety Report 6098083-9 (Version None)
Quarter: 2009Q1

REPORT INFORMATION
  Report Type: 
  Country: None (occurrence: None)
  Receive Date: 20090227
  Receipt Date: 20090225
  Transmission Date: 20090719
  Serious: Yes (Hospitalization)
  Sender: FDA-Public Use
  Company Number: US-RB-010406-09

PATIENT
  Age: 42 Year
  Sex: Male

DRUGS (5)
  1. SUBOXONE [Suspect]
     Route: 060
     Dates: start: 20050101
  2. VALIUM [Concomitant]
     Indication: ANXIETY
     Dosage: DOSING INFORMAITON UNKNOWN.
     Route: 065
  3. NITROGLYCERIN [Concomitant]
     Indication: DRUG USE FOR UNKNOWN INDICATION
     Dosage: DOSING INFORMATION UNKNOWN.
     Route: 065
  4. HYDROCHLOROTHIAZIDE [Concomitant]
     Indication: HYPERTENSION
     Dosage: DOSING INFORMATION UNKNOWN.
     Route: 065
  5. COZAAR [Concomitant]
     Indication: HYPERTENSION
     Dosage: DOSING INFORMATION UNKNOWN.
     Route: 065

REACTIONS (1)
  - PANCREATITIS [None]
